FAERS Safety Report 5256674-9 (Version None)
Quarter: 2007Q1

REPORT INFORMATION
  Report Type: 
  Country: None (occurrence: None)
  Receive Date: 20070306
  Receipt Date: 20070301
  Transmission Date: 20070707
  Serious: Yes (Death, Hospitalization, Other)
  Sender: FDA-Public Use
  Company Number: PHRM2007FR00903

PATIENT
  Age: 57 Year
  Sex: Male

DRUGS (5)
  1. CLOZAPINE [Suspect]
     Indication: DEMENTIA
     Dosage: 25 MG, BID
     Route: 048
     Dates: start: 20061120, end: 20061204
  2. EXELON [Suspect]
     Indication: DEMENTIA
     Dosage: UNK, UNK
     Route: 048
     Dates: start: 20061120
  3. AMLODIPINE [Concomitant]
     Indication: HYPERTENSION
     Route: 048
  4. MODOPAR [Concomitant]
     Indication: PARKINSON'S DISEASE
     Route: 048
  5. MOLSIDOMINE [Concomitant]
     Indication: ANGINA PECTORIS
     Route: 048

REACTIONS (5)
  - ABASIA [None]
  - CARDIAC ARREST [None]
  - DYSPNOEA [None]
  - PULMONARY EMBOLISM [None]
  - SPEECH DISORDER [None]
